FAERS Safety Report 9238293 (Version 1)
Quarter: 2013Q2

REPORT INFORMATION
  Report Type: Spontaneous
  Country: US (occurrence: None)
  Receive Date: 20130415
  Receipt Date: 20130415
  Transmission Date: 20140414
  Serious: Yes (Hospitalization, Other)
  Sender: FDA-Public Use
  Company Number: AUR-APL-2013-02959

PATIENT
  Age: 77 Year
  Sex: Female

DRUGS (5)
  1. LOSARTAN (LOSARTAN) [Suspect]
     Indication: HYPERTENSION
     Dates: start: 20101207, end: 20101221
  2. LOSARTAN AND HYDROCHLOROTHIAZIDE [Suspect]
     Indication: HYPERTENSION
     Dates: start: 20101221, end: 20110331
  3. BENICAR [Suspect]
     Indication: HYPERTENSION
     Route: 048
     Dates: start: 20040127, end: 20041012
  4. BENICAR HCT [Suspect]
     Indication: HYPERTENSION
     Dosage: 40 MG/12.5 MG, DAILY,ORAL
     Route: 048
     Dates: start: 20101031, end: 201012
  5. LISINOPRIL(LISINOPRIL) [Concomitant]

REACTIONS (9)
  - Nightmare [None]
  - Insomnia [None]
  - Atrial fibrillation [None]
  - Nausea [None]
  - Diarrhoea [None]
  - Weight decreased [None]
  - Normochromic normocytic anaemia [None]
  - Abdominal pain [None]
  - Blood pressure inadequately controlled [None]
